FAERS Safety Report 5529870-0 (Version None)
Quarter: 2007Q4

REPORT INFORMATION
  Report Type: 
  Country: None (occurrence: None)
  Receive Date: 20071129
  Receipt Date: 20071120
  Transmission Date: 20080405
  Serious: Yes (Hospitalization, Other)
  Sender: FDA-Public Use
  Company Number: BE-ABBOTT-07P-013-0425279-00

PATIENT
  Sex: Female

DRUGS (9)
  1. HUMIRA [Suspect]
     Indication: RHEUMATOID ARTHRITIS
     Dates: start: 20041209
  2. TELMISARTAN [Concomitant]
     Indication: DRUG USE FOR UNKNOWN INDICATION
  3. LORMETAZEPAM [Concomitant]
     Indication: DRUG USE FOR UNKNOWN INDICATION
  4. METHYLPREDNISOLONE [Concomitant]
     Indication: RHEUMATOID ARTHRITIS
  5. METHYLPREDNISOLONE [Concomitant]
  6. PAMIDRONATE DISODIUM [Concomitant]
     Indication: COMPRESSION FRACTURE
     Route: 042
  7. ENOXAPARIN SODIUM [Concomitant]
     Indication: CYSTITIS
     Dates: start: 20070101, end: 20070817
  8. LORMETAZEPAM [Concomitant]
     Dates: start: 20070101
  9. MOXONIDINE [Concomitant]
     Indication: DRUG USE FOR UNKNOWN INDICATION
     Dates: start: 20070101

REACTIONS (16)
  - ANAEMIA [None]
  - ANOREXIA [None]
  - CHOLELITHIASIS [None]
  - CLOSTRIDIAL INFECTION [None]
  - CYSTITIS INTERSTITIAL [None]
  - DIAPHRAGMATIC HERNIA [None]
  - DIARRHOEA [None]
  - GASTROENTERITIS VIRAL [None]
  - GASTROOESOPHAGEAL REFLUX DISEASE [None]
  - GENERAL PHYSICAL HEALTH DETERIORATION [None]
  - HYPERTENSION [None]
  - HYPONATRAEMIA [None]
  - PYREXIA [None]
  - SKIN LACERATION [None]
  - URINARY TRACT INFECTION BACTERIAL [None]
  - VOMITING [None]
